FAERS Safety Report 5285949-2 (Version None)
Quarter: 2007Q2

REPORT INFORMATION
  Report Type: 
  Country: None (occurrence: None)
  Receive Date: 20070404
  Receipt Date: 20070323
  Transmission Date: 20071010
  Serious: Yes (Hospitalization)
  Sender: FDA-Public Use
  Company Number: PHHO2006JP01779

PATIENT
  Age: 47 Year
  Sex: Male

DRUGS (10)
  1. ASTOMIN [Concomitant]
  2. LAXOBERON [Concomitant]
  3. MAGCOROL P [Concomitant]
  4. PURSENNID [Concomitant]
  5. DIOVAN [Suspect]
     Dosage: 40 MG, QD
     Route: 048
     Dates: start: 20031023, end: 20031105
  6. DIOVAN [Suspect]
     Dosage: 80 MG, QD
     Route: 048
     Dates: start: 20031106
  7. NORVASC [Concomitant]
     Indication: HYPERTENSION
  8. FERROMIA [Concomitant]
     Indication: IRON DEFICIENCY ANAEMIA
  9. CINAL [Concomitant]
     Indication: IRON DEFICIENCY ANAEMIA
  10. SELECTOL [Concomitant]
     Indication: HYPERTENSION

REACTIONS (5)
  - GASTROINTESTINAL TRACT ADENOMA [None]
  - INFLUENZA [None]
  - PNEUMONIA [None]
  - POLYPECTOMY [None]
  - REFLUX OESOPHAGITIS [None]
